FAERS Safety Report 9847864 (Version 1)
Quarter: 2014Q1

REPORT INFORMATION
  Report Type: Report from Study
  Country: GB (occurrence: GB)
  Receive Date: 20140128
  Receipt Date: 20140128
  Transmission Date: 20141002
  Serious: Yes (Death)
  Sender: FDA-Public Use
  Company Number: GB-AMGEN-GBRCT2014005455

PATIENT
  Age: 71 Year
  Sex: Female
  Weight: 82.5 kg

DRUGS (11)
  1. ETANERCEPT [Suspect]
     Indication: PRODUCT USED FOR UNKNOWN INDICATION
     Dosage: 50 MG, QWK
     Route: 065
     Dates: start: 20110204, end: 20120517
  2. AMITRIPTYLINE [Concomitant]
     Dosage: UNK
     Dates: start: 20060724
  3. FOSINOPRIL [Concomitant]
     Dosage: UNK
     Dates: start: 20060724
  4. MERBENTYL [Concomitant]
     Dosage: UNK
     Dates: start: 20060724
  5. METFORMIN [Concomitant]
     Dosage: UNK
     Dates: start: 20060724
  6. ASPIRIN [Concomitant]
     Dosage: UNK
     Dates: start: 20110224
  7. INSULIN [Concomitant]
     Dosage: UNK
     Dates: start: 20110224
  8. AMLODIPINE [Concomitant]
     Dosage: UNK
     Dates: start: 20120324
  9. BENDROFLUMETHIAZIDE [Concomitant]
     Dosage: UNK
     Dates: start: 20120324
  10. FOLIC ACID [Concomitant]
     Dosage: UNK
     Dates: start: 20120324
  11. NOVOMIX [Concomitant]
     Dosage: UNK
     Dates: start: 20120324

REACTIONS (5)
  - Multi-organ failure [Fatal]
  - Ischaemia [Fatal]
  - Peripheral vascular disorder [Fatal]
  - Anal cancer metastatic [Fatal]
  - Type 2 diabetes mellitus [Fatal]
